FAERS Safety Report 17062997 (Version 1)
Quarter: 2019Q4

REPORT INFORMATION
  Report Type: Report from Study
  Country: US (occurrence: US)
  Receive Date: 20191122
  Receipt Date: 20191122
  Transmission Date: 20200122
  Serious: No
  Sender: FDA-Public Use
  Company Number: NVSC2019US044375

PATIENT
  Sex: Male

DRUGS (1)
  1. ENTRESTO [Suspect]
     Active Substance: SACUBITRIL\VALSARTAN
     Indication: PRODUCT USED FOR UNKNOWN INDICATION
     Route: 048

REACTIONS (7)
  - Gait inability [Unknown]
  - Somnolence [Unknown]
  - General physical health deterioration [Unknown]
  - Fall [Unknown]
  - Asthenia [Unknown]
  - Arthritis [Unknown]
  - Dysstasia [Unknown]
